FAERS Safety Report 4674441-1 (Version None)
Quarter: 2005Q2

REPORT INFORMATION
  Report Type: 
  Country: None (occurrence: None)
  Receive Date: 20050524
  Receipt Date: 20050509
  Transmission Date: 20051028
  Serious: Yes (Other)
  Sender: FDA-Public Use
  Company Number: USA050597669

PATIENT
  Age: 70 Year
  Sex: Male

DRUGS (3)
  1. ALIMTA [Suspect]
     Indication: NON-SMALL CELL LUNG CANCER
     Dates: start: 20050101, end: 20050101
  2. GEMZAR [Suspect]
     Indication: NON-SMALL CELL LUNG CANCER
     Dosage: 1000 MG/M2
  3. NAVELBINE [Concomitant]

REACTIONS (3)
  - COUGH [None]
  - DYSPNOEA [None]
  - RECALL PHENOMENON [None]
